FAERS Safety Report 9211264 (Version 1)
Quarter: 2013Q2

REPORT INFORMATION
  Report Type: Spontaneous
  Country: US (occurrence: US)
  Receive Date: 20130404
  Receipt Date: 20130404
  Transmission Date: 20140414
  Serious: Yes (Other)
  Sender: FDA-Public Use
  Company Number: US-GILEAD-2013-0072521

PATIENT
  Age: 86 Year
  Sex: Female

DRUGS (17)
  1. RANOLAZINE [Suspect]
     Indication: ANGINA PECTORIS
  2. ATORVASTATIN [Interacting]
     Indication: PRODUCT USED FOR UNKNOWN INDICATION
  3. PRASUGREL [Concomitant]
  4. METOPROLOL [Concomitant]
  5. LISINOPRIL [Concomitant]
  6. FELODIPINE [Concomitant]
  7. ASPIRIN [Concomitant]
  8. FUROSEMIDE [Concomitant]
  9. NITROGLYCERIN [Concomitant]
     Route: 062
  10. RISEDRONATE [Concomitant]
  11. RABEPRAZOLE [Concomitant]
  12. KCL [Concomitant]
  13. DOCUSATE [Concomitant]
  14. CALCIUM [Concomitant]
  15. SENNA                              /00142201/ [Concomitant]
  16. FLONASE [Concomitant]
  17. LORATADINE [Concomitant]

REACTIONS (7)
  - Blood creatine phosphokinase increased [Recovering/Resolving]
  - Myopathy [Recovering/Resolving]
  - Back pain [Recovering/Resolving]
  - Pain in extremity [Recovering/Resolving]
  - Muscular weakness [Recovering/Resolving]
  - Dizziness [Recovering/Resolving]
  - Gait disturbance [Recovering/Resolving]
